FAERS Safety Report 20466526 (Version 3)
Quarter: 2022Q1

REPORT INFORMATION
  Report Type: Report from Study
  Country: US (occurrence: US)
  Receive Date: 20220213
  Receipt Date: 20220309
  Transmission Date: 20220423
  Serious: Yes (Other)
  Sender: FDA-Public Use
  Company Number: US-ABBVIE-21K-163-4201173-00

PATIENT
  Sex: Female

DRUGS (2)
  1. HUMIRA [Suspect]
     Active Substance: ADALIMUMAB
     Indication: Rheumatoid arthritis
     Dosage: CITRATE FREE
     Route: 058
  2. PFIZER-BIONTECH COVID-19 VACCINE [Concomitant]
     Active Substance: TOZINAMERAN
     Indication: COVID-19 immunisation
     Route: 030

REACTIONS (6)
  - Intervertebral disc disorder [Unknown]
  - Spinal compression fracture [Unknown]
  - Peroneal nerve palsy [Not Recovered/Not Resolved]
  - Post procedural complication [Not Recovered/Not Resolved]
  - Nerve injury [Unknown]
  - Allergic sinusitis [Recovering/Resolving]
